FAERS Safety Report 16667603 (Version 1)
Quarter: 2019Q3

REPORT INFORMATION
  Report Type: Report from Study
  Country: DE (occurrence: DE)
  Receive Date: 20190805
  Receipt Date: 20190805
  Transmission Date: 20191004
  Serious: Yes (Death)
  Sender: FDA-Public Use
  Company Number: DE-PFIZER INC-2019327231

PATIENT
  Age: 30 Year
  Sex: Male

DRUGS (9)
  1. LORAZEPAM. [Suspect]
     Active Substance: LORAZEPAM
     Dosage: UNK
  2. NORDAZEPAM [Suspect]
     Active Substance: NORDAZEPAM
     Dosage: UNK
  3. NORTRIPTYLINE [Suspect]
     Active Substance: NORTRIPTYLINE
     Dosage: UNK
  4. BROMAZEPAM [Suspect]
     Active Substance: BROMAZEPAM
     Dosage: UNK
  5. CARBAMAZEPINE. [Suspect]
     Active Substance: CARBAMAZEPINE
     Dosage: UNK
  6. AMITRIPTYLINE [Suspect]
     Active Substance: AMITRIPTYLINE
     Dosage: UNK
  7. METHOXPHENIDINE [Suspect]
     Active Substance: METHOXPHENIDINE
     Dosage: UNK
  8. DIAZEPAM. [Suspect]
     Active Substance: DIAZEPAM
     Dosage: UNK
  9. U-47700 [Suspect]
     Active Substance: U-47700
     Dosage: UNK

REACTIONS (1)
  - Toxicity to various agents [Fatal]
